FAERS Safety Report 11733609 (Version 1)
Quarter: 2015Q4

REPORT INFORMATION
  Report Type: Spontaneous
  Country: US (occurrence: US)
  Receive Date: 20151113
  Receipt Date: 20151113
  Transmission Date: 20160304
  Serious: Yes (Other)
  Sender: FDA-Public Use
  Company Number: US-ASTRAZENECA-2015SE79187

PATIENT
  Age: 71 Year
  Sex: Female
  Weight: 104.3 kg

DRUGS (19)
  1. METFORMIN HYDROCHLORIDE. [Concomitant]
     Active Substance: METFORMIN HYDROCHLORIDE
     Indication: TYPE 2 DIABETES MELLITUS
  2. FOLIC ACID. [Concomitant]
     Active Substance: FOLIC ACID
  3. VITAMIN D [Concomitant]
     Active Substance: CHOLECALCIFEROL
     Dosage: 100 UNIT, 1 TABLET, ONCE A DAY
  4. LOVASTATIN. [Concomitant]
     Active Substance: LOVASTATIN
  5. LISINOPRIL. [Concomitant]
     Active Substance: LISINOPRIL
  6. LEVEMIR [Concomitant]
     Active Substance: INSULIN DETEMIR
     Dosage: 100 UNIT /ML, 30 UNITS EACH EVENING
  7. LANTUS [Concomitant]
     Active Substance: INSULIN GLARGINE
     Indication: TYPE 2 DIABETES MELLITUS
  8. KETOCONAZOLE. [Concomitant]
     Active Substance: KETOCONAZOLE
     Dosage: 1 APPLICATION TO AFFECTED AREA ONCE A DAY AS NEEDED
  9. AMLODIPINE BESILATE [Concomitant]
     Active Substance: AMLODIPINE BESYLATE
  10. BYDUREON [Suspect]
     Active Substance: EXENATIDE
     Indication: TYPE 2 DIABETES MELLITUS
     Route: 058
     Dates: start: 201504
  11. METAMUCIL [Concomitant]
     Active Substance: PLANTAGO SEED
  12. IBUPROFEN. [Concomitant]
     Active Substance: IBUPROFEN
     Indication: ARTHRALGIA
     Dosage: 1 TABLET W/FOOD UPTO 3 TIMES A DAY AS NEEDED
  13. GABAPENTIN. [Concomitant]
     Active Substance: GABAPENTIN
  14. GLIPIZIDE. [Concomitant]
     Active Substance: GLIPIZIDE
     Indication: TYPE 2 DIABETES MELLITUS
  15. MULTIVITAMINS [Concomitant]
     Active Substance: VITAMINS
  16. LEVOTHYROXINE SODIUM. [Concomitant]
     Active Substance: LEVOTHYROXINE SODIUM
  17. LOVAZA [Concomitant]
     Active Substance: OMEGA-3-ACID ETHYL ESTERS
  18. CALCIUM+D [Concomitant]
     Dosage: 600-200 MG-UNIT, 1 TABLET WITH FOOD, DAILY
  19. ERYTHROMYCIN. [Concomitant]
     Active Substance: ERYTHROMYCIN
     Dosage: 1 DROP, TO AFFECTED AREA TWICE A DAY

REACTIONS (3)
  - Cataract [Unknown]
  - Injection site mass [Recovering/Resolving]
  - Injection site pain [Unknown]
